FAERS Safety Report 15468645 (Version 1)
Quarter: 2018Q4

REPORT INFORMATION
  Report Type: Report from Study
  Country: ES (occurrence: ES)
  Receive Date: 20181005
  Receipt Date: 20181005
  Transmission Date: 20190204
  Serious: Yes (Other)
  Sender: FDA-Public Use
  Company Number: ES-PFIZER INC-2018398549

PATIENT
  Age: 71 Year
  Sex: Male

DRUGS (3)
  1. AZTREONAM. [Suspect]
     Active Substance: AZTREONAM
     Dosage: 2 G, 3X/DAY (EVERY 8 HOURS)
     Route: 042
     Dates: start: 20171005, end: 20171023
  2. LINEZOLID. [Suspect]
     Active Substance: LINEZOLID
     Dosage: 600 MG, 2X/DAY (EVERY 12 HOURS)
     Route: 042
     Dates: start: 20171005, end: 20171023
  3. COLISTIMETHATE SODIUM ACCORD [Suspect]
     Active Substance: COLISTIMETHATE SODIUM
     Dosage: 2000 KIU, 2X/DAY (2 MLL/12H)
     Route: 042
     Dates: start: 20171002, end: 20171018

REACTIONS (4)
  - Hypomagnesaemia [Recovered/Resolved]
  - Hypocalcaemia [Recovering/Resolving]
  - Hypokalaemia [Recovered/Resolved]
  - Extrasystoles [Recovering/Resolving]

NARRATIVE: CASE EVENT DATE: 20171023
